FAERS Safety Report 6115637-1 (Version None)
Quarter: 2009Q1

REPORT INFORMATION
  Report Type: 
  Country: None (occurrence: None)
  Receive Date: 20090313
  Receipt Date: 20090303
  Transmission Date: 20090719
  Serious: Yes (Other)
  Sender: FDA-Public Use
  Company Number: CA-JNJFOC-20090301275

PATIENT
  Weight: 74 kg

DRUGS (1)
  1. REMICADE [Suspect]
     Indication: CROHN'S DISEASE
     Dosage: TOTAL OF 18 DOSES
     Route: 042

REACTIONS (2)
  - BREAST CANCER [None]
  - LOWER RESPIRATORY TRACT INFECTION [None]
